FAERS Safety Report 6909750-6 (Version None)
Quarter: 2010Q3

REPORT INFORMATION
  Report Type: 
  Country: None (occurrence: None)
  Receive Date: 20100806
  Receipt Date: 20100728
  Transmission Date: 20110219
  Serious: Yes (Hospitalization)
  Sender: FDA-Public Use
  Company Number: 2009BI039241

PATIENT
  Age: 58 Year
  Sex: Female
  Weight: 86 kg

DRUGS (22)
  1. TYSABRI [Suspect]
     Indication: MULTIPLE SCLEROSIS
     Route: 042
     Dates: start: 20061206
  2. METHADONE HCL [Concomitant]
     Indication: PRODUCT USED FOR UNKNOWN INDICATION
     Route: 048
  3. METHADONE HCL [Concomitant]
     Route: 048
  4. BACLOFEN [Concomitant]
     Indication: MUSCLE SPASMS
  5. OXYCODONE [Concomitant]
     Indication: PAIN
     Route: 048
  6. NEURONTIN [Concomitant]
     Indication: MULTIPLE SCLEROSIS
     Route: 048
  7. DITROPAN [Concomitant]
     Indication: PRODUCT USED FOR UNKNOWN INDICATION
  8. VITAMIN B1 TAB [Concomitant]
     Indication: PRODUCT USED FOR UNKNOWN INDICATION
  9. MIRTAZAPINE [Concomitant]
     Indication: PRODUCT USED FOR UNKNOWN INDICATION
     Route: 048
  10. CYMBALTA [Concomitant]
     Indication: PRODUCT USED FOR UNKNOWN INDICATION
     Route: 048
  11. ACTONEL [Concomitant]
     Indication: PRODUCT USED FOR UNKNOWN INDICATION
  12. CLOZAPINE [Concomitant]
     Indication: PRODUCT USED FOR UNKNOWN INDICATION
  13. LIDODERM [Concomitant]
     Indication: PRODUCT USED FOR UNKNOWN INDICATION
  14. DIAZEPAM [Concomitant]
     Indication: MUSCLE SPASMS
  15. DOCUSATE SODIUM [Concomitant]
  16. ENOXAPARIN SODIUM [Concomitant]
     Indication: THROMBOSIS PROPHYLAXIS
  17. OXYCODONE HCL AND ACETAMINOPHEN [Concomitant]
     Indication: PRODUCT USED FOR UNKNOWN INDICATION
  18. METHADONE HCL [Concomitant]
     Indication: ANALGESIC THERAPY
  19. PROMETHAZINE [Concomitant]
     Route: 048
  20. CILIUM [PRESUMED PSYLLIUM] [Concomitant]
  21. ZOLPIDEM [Concomitant]
     Indication: INSOMNIA
  22. BUPROPION [Concomitant]
     Indication: DEPRESSION

REACTIONS (5)
  - BRONCHOPNEUMONIA [None]
  - CARTILAGE INJURY [None]
  - CERVICOBRACHIAL SYNDROME [None]
  - CLONUS [None]
  - FALL [None]
